FAERS Safety Report 6657975-X (Version None)
Quarter: 2010Q1

REPORT INFORMATION
  Report Type: 
  Country: None (occurrence: None)
  Receive Date: 20100330
  Receipt Date: 20100326
  Transmission Date: 20100710
  Serious: Yes (Death)
  Sender: FDA-Public Use
  Company Number: BE-ROCHE-693873

PATIENT
  Age: 45 Year
  Sex: Female

DRUGS (3)
  1. ACTEMRA [Suspect]
     Indication: RHEUMATOID ARTHRITIS
     Dosage: FREQUENCY: EVERY 4 WEEKS (Q4W)
     Route: 042
     Dates: start: 20090101, end: 20100301
  2. METHOTREXATE [Concomitant]
     Indication: RHEUMATOID ARTHRITIS
     Dosage: DOSAGE: NOT REPORTED
  3. DAFALGAN CODEINE [Concomitant]
     Dosage: FREQUENCY: IF NEEDED

REACTIONS (1)
  - SEPTIC SHOCK [None]
